FAERS Safety Report 14751043 (Version 1)
Quarter: 2018Q2

REPORT INFORMATION
  Report Type: Spontaneous
  Country: AU (occurrence: AU)
  Receive Date: 20180412
  Receipt Date: 20180412
  Transmission Date: 20180711
  Serious: Yes (Hospitalization, Other)
  Sender: FDA-Public Use
  Company Number: AU-ASTRAZENECA-2018SE45003

PATIENT
  Age: 16197 Day
  Sex: Male

DRUGS (1)
  1. CRESTOR [Suspect]
     Active Substance: ROSUVASTATIN CALCIUM
     Route: 048
     Dates: start: 201608

REACTIONS (13)
  - Joint swelling [Unknown]
  - Blood urine present [Unknown]
  - Fall [Unknown]
  - Hyperhidrosis [Unknown]
  - Musculoskeletal stiffness [Unknown]
  - Dyspepsia [Unknown]
  - Myalgia [Unknown]
  - Diarrhoea [Unknown]
  - Constipation [Unknown]
  - Protein urine [Unknown]
  - Oedema [Unknown]
  - Joint stiffness [Unknown]
  - Sticky skin [Unknown]

NARRATIVE: CASE EVENT DATE: 20161224
